FAERS Safety Report 4340983-1 (Version None)
Quarter: 2004Q2

REPORT INFORMATION
  Report Type: 
  Country: None (occurrence: None)
  Receive Date: 20040413
  Receipt Date: 20040331
  Transmission Date: 20050107
  Serious: Yes (Hospitalization)
  Sender: FDA-Public Use
  Company Number: 2003SE04231

PATIENT
  Age: 71 Year
  Sex: Male

DRUGS (5)
  1. SELOKEN ZOC [Suspect]
     Dosage: 100 MG DAILY PO
     Route: 048
     Dates: start: 20021106
  2. TROMBYL [Suspect]
     Indication: ACUTE MYOCARDIAL INFARCTION
     Dosage: 75 MG DAILY PO
     Route: 048
     Dates: start: 20021106
  3. TROMBYL [Suspect]
     Indication: HYPERTENSION
     Dosage: 75 MG DAILY PO
     Route: 048
     Dates: start: 20021106
  4. AGGRASTAT [Concomitant]
  5. PLAVIX [Suspect]
     Dates: start: 20021107

REACTIONS (12)
  - AORTIC STENOSIS [None]
  - CARDIAC FAILURE [None]
  - CORONARY ARTERY DISEASE [None]
  - DERMATITIS BULLOUS [None]
  - GANGRENE [None]
  - HAEMORRHAGE [None]
  - PETECHIAE [None]
  - SHOCK [None]
  - SKIN ULCER [None]
  - VASCULITIS [None]
  - WOUND [None]
  - WOUND INFECTION [None]
